FAERS Safety Report 7299204-2 (Version None)
Quarter: 2011Q1

REPORT INFORMATION
  Report Type: 
  Country: None (occurrence: None)
  Receive Date: 20110217
  Receipt Date: 20110203
  Transmission Date: 20110831
  Serious: Yes (Life-Threatening, Other)
  Sender: FDA-Public Use
  Company Number: GB-MYLANLABS-2011S1002348

PATIENT

DRUGS (5)
  1. INSULIN [Concomitant]
     Route: 064
  2. AMLODIPINE [Concomitant]
     Route: 064
     Dates: end: 20110115
  3. BENDROFLUMETHIAZIDE [Concomitant]
     Route: 064
     Dates: end: 20110115
  4. BISOPROLOL [Concomitant]
     Route: 064
     Dates: end: 20110115
  5. ENALAPRIL [Suspect]
     Route: 048
     Dates: end: 20110115

REACTIONS (3)
  - DRUG EXPOSURE DURING PREGNANCY [None]
  - FOETAL DISTRESS SYNDROME [None]
  - OLIGOHYDRAMNIOS [None]
